FAERS Safety Report 19275162 (Version 1)
Quarter: 2021Q2

REPORT INFORMATION
  Report Type: Spontaneous
  Country: US (occurrence: US)
  Receive Date: 20210519
  Receipt Date: 20210519
  Transmission Date: 20210717
  Serious: No
  Sender: FDA-Public Use
  Company Number: US-TEVA-2021-US-1909674

PATIENT
  Age: 56 Year
  Sex: Female
  Weight: 117.8 kg

DRUGS (1)
  1. PREGABALIN TEVA [Suspect]
     Active Substance: PREGABALIN
     Dosage: BEIGE LOOKING PILL
     Route: 065
     Dates: start: 20210410

REACTIONS (7)
  - Lethargy [Unknown]
  - Pain [Unknown]
  - Depressed mood [Recovered/Resolved]
  - Drug ineffective [Unknown]
  - Mobility decreased [Unknown]
  - Illness [Unknown]
  - Feeling abnormal [Unknown]

NARRATIVE: CASE EVENT DATE: 202104
